FAERS Safety Report 17579506 (Version 3)
Quarter: 2020Q3

REPORT INFORMATION
  Report Type: Spontaneous
  Country: US (occurrence: US)
  Receive Date: 20200325
  Receipt Date: 20200908
  Transmission Date: 20201102
  Serious: Yes (Other)
  Sender: FDA-Public Use
  Company Number: US-GILEAD-2020-0455958

PATIENT
  Age: 65 Year
  Sex: Male

DRUGS (15)
  1. CALCITRIOL. [Concomitant]
     Active Substance: CALCITRIOL
  2. AMITIZA [Concomitant]
     Active Substance: LUBIPROSTONE
  3. CLONAZEPAM. [Concomitant]
     Active Substance: CLONAZEPAM
  4. ISENTRESS [Concomitant]
     Active Substance: RALTEGRAVIR POTASSIUM
  5. GENVOYA [Concomitant]
     Active Substance: COBICISTAT\ELVITEGRAVIR\EMTRICITABINE\TENOFOVIR ALAFENAMIDE FUMARATE
  6. EPIVIR [Concomitant]
     Active Substance: LAMIVUDINE
  7. LUNESTA [Concomitant]
     Active Substance: ESZOPICLONE
  8. GLIMEPIRIDE. [Concomitant]
     Active Substance: GLIMEPIRIDE
  9. EPIVIR [Concomitant]
     Active Substance: LAMIVUDINE
  10. VIREAD [Suspect]
     Active Substance: TENOFOVIR DISOPROXIL FUMARATE
     Indication: HIV INFECTION
     Dosage: UNK
     Route: 048
     Dates: start: 2005
  11. LINZESS [Concomitant]
     Active Substance: LINACLOTIDE
  12. QUETIAPINE FUMARATE. [Concomitant]
     Active Substance: QUETIAPINE FUMARATE
  13. TRUVADA [Suspect]
     Active Substance: EMTRICITABINE\TENOFOVIR DISOPROXIL FUMARATE
     Indication: HIV INFECTION
     Dosage: UNK
     Route: 048
     Dates: start: 2013, end: 2016
  14. MIRTAZAPINE. [Concomitant]
     Active Substance: MIRTAZAPINE
  15. VICTOZA [Concomitant]
     Active Substance: LIRAGLUTIDE

REACTIONS (8)
  - Renal failure [Not Recovered/Not Resolved]
  - Anhedonia [Not Recovered/Not Resolved]
  - Chronic kidney disease [Not Recovered/Not Resolved]
  - Pain [Not Recovered/Not Resolved]
  - Economic problem [Not Recovered/Not Resolved]
  - Anxiety [Not Recovered/Not Resolved]
  - Emotional distress [Not Recovered/Not Resolved]
  - Blood creatinine increased [Unknown]

NARRATIVE: CASE EVENT DATE: 20150827
